FAERS Safety Report 23959741 (Version 1)
Quarter: 2024Q2

REPORT INFORMATION
  Report Type: Spontaneous
  Country: FR (occurrence: FR)
  Receive Date: 20240611
  Receipt Date: 20240611
  Transmission Date: 20240716
  Serious: Yes (Hospitalization, Other)
  Sender: FDA-Public Use
  Company Number: FR-CELLTRION INC.-2024FR013693

PATIENT

DRUGS (2)
  1. RITUXIMAB [Suspect]
     Active Substance: RITUXIMAB
     Indication: Splenic marginal zone lymphoma
     Dosage: UNK
     Route: 042
     Dates: start: 20220512
  2. BENDAMUSTINE [Suspect]
     Active Substance: BENDAMUSTINE
     Indication: Splenic marginal zone lymphoma
     Dosage: UNK
     Route: 042
     Dates: start: 20220512

REACTIONS (2)
  - Cerebrovascular accident [Recovered/Resolved with Sequelae]
  - Intentional product use issue [Unknown]

NARRATIVE: CASE EVENT DATE: 20220513
